FAERS Safety Report 5380060-4 (Version None)
Quarter: 2007Q3

REPORT INFORMATION
  Report Type: 
  Country: None (occurrence: None)
  Receive Date: 20070706
  Receipt Date: 20070411
  Transmission Date: 20080115
  Serious: No
  Sender: FDA-Public Use
  Company Number: A0646803A

PATIENT
  Age: 59 Year
  Sex: Female

DRUGS (7)
  1. LAPATINIB [Suspect]
     Indication: BREAST CANCER
     Dosage: 5TAB PER DAY
     Route: 048
     Dates: start: 20070409
  2. XELODA [Suspect]
     Indication: BREAST CANCER
     Dosage: 1500MG TWICE PER DAY
     Route: 048
     Dates: start: 20070409
  3. SYNTHROID [Concomitant]
  4. CYTOMEL [Concomitant]
  5. CELEXA [Concomitant]
  6. BENADRYL [Concomitant]
  7. IMODIUM [Concomitant]

REACTIONS (2)
  - DIARRHOEA [None]
  - VOMITING [None]
